FAERS Safety Report 19589298 (Version 7)
Quarter: 2023Q2

REPORT INFORMATION
  Report Type: Report from Study
  Country: JP (occurrence: None)
  Receive Date: 20210721
  Receipt Date: 20230622
  Transmission Date: 20230722
  Serious: Yes (Hospitalization)
  Sender: FDA-Public Use
  Company Number: JP-ROCHE-2856257

PATIENT
  Age: 71 Year
  Sex: Male
  Weight: 65.5 kg

DRUGS (40)
  1. TOCILIZUMAB [Suspect]
     Active Substance: TOCILIZUMAB
     Indication: Pancreatic carcinoma metastatic
     Dosage: ON DAY 1 OF EACH 28 DAY CYCLE (AS PER PROTOCOL)?MOST RECENT DOSE 556 MG OF TOCILIZUMAB PRIOR TO AE:
     Route: 042
     Dates: start: 20210330
  2. ATEZOLIZUMAB [Suspect]
     Active Substance: ATEZOLIZUMAB
     Indication: Pancreatic carcinoma metastatic
     Dosage: MOST RECENT DOSE 1680 MG OF ATEZOLIZUMAB PRIOR TO AE (ADVERSE EVENT): 25/MAY/2021
     Route: 041
     Dates: start: 20210330
  3. GEMCITABINE [Suspect]
     Active Substance: GEMCITABINE
     Indication: Pancreatic carcinoma metastatic
     Dosage: DAYS 1, 8, AND 15 OF EACH 28 DAY CYCLE (AS PER PROTOCOL)?MOST RECENT DOSE 1060 MG OF GEMCITABINE PRI
     Route: 042
     Dates: start: 20210330
  4. PACLITAXEL [Suspect]
     Active Substance: PACLITAXEL
     Indication: Pancreatic carcinoma metastatic
     Dosage: ON DAYS 1, 8, AND 15 OF EACH 28 DAY CYCLE (AS PER PROTOCOL)?MOST RECENT DOSE 130 MG OF NAB-PACLITAXE
     Route: 042
     Dates: start: 20210330
  5. NEXIUM [Concomitant]
     Active Substance: ESOMEPRAZOLE MAGNESIUM
     Route: 048
  6. TRESIBA [Concomitant]
     Active Substance: INSULIN DEGLUDEC
     Indication: Diabetes mellitus
     Dates: start: 20210324
  7. LOXOPROFEN [Concomitant]
     Active Substance: LOXOPROFEN
     Indication: Tumour pain
     Dates: start: 20210406
  8. HYDROMORPHONE HYDROCHLORIDE [Concomitant]
     Active Substance: HYDROMORPHONE HYDROCHLORIDE
     Indication: Tumour pain
     Dates: start: 20210415
  9. HYDROMORPHONE HYDROCHLORIDE [Concomitant]
     Active Substance: HYDROMORPHONE HYDROCHLORIDE
     Indication: Tumour pain
     Dates: start: 20210418
  10. MAGNESIUM OXIDE [Concomitant]
     Active Substance: MAGNESIUM OXIDE
     Indication: Constipation
     Dates: start: 20210418
  11. IPRAGLIFLOZIN L-PROLINE [Concomitant]
     Active Substance: IPRAGLIFLOZIN L-PROLINE
     Indication: Diabetes mellitus
     Dates: start: 20210427
  12. EQUMET COMBINATION TABLETS HD [Concomitant]
     Indication: Diabetes mellitus
     Dates: start: 20210427, end: 20210712
  13. BEPOTASTINE BESYLATE [Concomitant]
     Active Substance: BEPOTASTINE BESYLATE
     Indication: Rash
     Dates: start: 20210427
  14. PRIMPERAN [Concomitant]
     Active Substance: METOCLOPRAMIDE HYDROCHLORIDE
     Indication: Nausea
     Dates: start: 20210506
  15. GRANISETRON [Concomitant]
     Active Substance: GRANISETRON
     Dates: start: 20210525, end: 20210525
  16. GRANISETRON [Concomitant]
     Active Substance: GRANISETRON
     Dates: start: 20210601, end: 20210601
  17. GRANISETRON [Concomitant]
     Active Substance: GRANISETRON
     Dates: start: 20210719, end: 20210719
  18. CALCIUM CHLORIDE ANHYDROUS\POTASSIUM CHLORIDE\SODIUM CHLORIDE\SODIUM L [Concomitant]
     Active Substance: CALCIUM CHLORIDE ANHYDROUS\POTASSIUM CHLORIDE\SODIUM CHLORIDE\SODIUM LACTATE
     Dates: start: 20210629, end: 20210629
  19. ULINASTATIN [Concomitant]
     Active Substance: ULINASTATIN
     Indication: Pancreatitis
     Dates: start: 20210629, end: 20210629
  20. MIDAZOLAM [Concomitant]
     Active Substance: MIDAZOLAM
     Dates: start: 20210629, end: 20210629
  21. DIATRIZOATE MEGLUMINE\DIATRIZOATE SODIUM [Concomitant]
     Active Substance: DIATRIZOATE MEGLUMINE\DIATRIZOATE SODIUM
     Dates: start: 20210629, end: 20210629
  22. VISIPAQUE [Concomitant]
     Active Substance: IODIXANOL
     Dates: start: 20210629, end: 20210629
  23. SCOPOLAMINE [Concomitant]
     Active Substance: SCOPOLAMINE
     Dates: start: 20210629, end: 20210629
  24. XYLOCAINE VISCOUS [Concomitant]
     Active Substance: LIDOCAINE HYDROCHLORIDE
     Dates: start: 20210629, end: 20210629
  25. XYLOCAINE VISCOUS [Concomitant]
     Active Substance: LIDOCAINE HYDROCHLORIDE
     Dates: start: 20210629, end: 20210629
  26. SOLULACT D [Concomitant]
     Dates: start: 20210630, end: 20210630
  27. REPAGLINIDE [Concomitant]
     Active Substance: REPAGLINIDE
     Indication: Diabetes mellitus
     Dates: start: 20210705
  28. COMIRNATY [Concomitant]
     Active Substance: TOZINAMERAN
     Route: 030
     Dates: start: 20210708, end: 20210708
  29. HUMULIN R [Concomitant]
     Active Substance: INSULIN HUMAN
     Indication: Diabetes mellitus
     Dates: start: 20210712, end: 20210713
  30. HUMALOG [Concomitant]
     Active Substance: INSULIN LISPRO
     Indication: Diabetes mellitus
     Dates: start: 20210714
  31. SULFAMETHOXAZOLE\TRIMETHOPRIM [Concomitant]
     Active Substance: SULFAMETHOXAZOLE\TRIMETHOPRIM
     Dates: start: 20210712
  32. ZOPICLONE [Concomitant]
     Active Substance: ZOPICLONE
     Indication: Insomnia
     Dates: start: 20210712
  33. PIPERACILLIN SODIUM\TAZOBACTAM SODIUM [Concomitant]
     Active Substance: PIPERACILLIN SODIUM\TAZOBACTAM SODIUM
     Indication: Infection
     Route: 042
     Dates: start: 20210718
  34. DEXAMETHASONE SODIUM PHOSPHATE [Concomitant]
     Active Substance: DEXAMETHASONE SODIUM PHOSPHATE
     Indication: Nausea
     Dates: start: 20210719, end: 20210719
  35. CARBAZOCHROME SODIUM SULFONATE [Concomitant]
     Active Substance: CARBAZOCHROME SODIUM SULFONATE
     Indication: Subdural haematoma
     Route: 042
     Dates: start: 20210730, end: 20210730
  36. TRANEXAMIC ACID [Concomitant]
     Active Substance: TRANEXAMIC ACID
     Indication: Subdural haematoma
     Route: 042
     Dates: start: 20210730, end: 20210730
  37. FRUCTOSE\GLYCERIN [Concomitant]
     Active Substance: FRUCTOSE\GLYCERIN
     Indication: Subdural haematoma
     Route: 042
     Dates: start: 20210730, end: 20210730
  38. DOPAMINE HYDROCHLORIDE [Concomitant]
     Active Substance: DOPAMINE HYDROCHLORIDE
     Indication: Subdural haematoma
     Route: 042
     Dates: start: 20210730, end: 20210730
  39. FFP-LR240 [Concomitant]
     Indication: Subdural haematoma
     Dosage: DOSE: 1 OTHER
     Route: 042
     Dates: start: 20210730, end: 20210730
  40. PLATELETS [Concomitant]
     Active Substance: HUMAN PLATELET, ALLOGENIC
     Indication: Subdural haematoma
     Route: 042
     Dates: start: 20210730, end: 20210730

REACTIONS (1)
  - Interstitial lung disease [Not Recovered/Not Resolved]

NARRATIVE: CASE EVENT DATE: 20210621
